FAERS Safety Report 17236964 (Version 1)
Quarter: 2020Q1

REPORT INFORMATION
  Report Type: Report from Study
  Country: US (occurrence: US)
  Receive Date: 20200106
  Receipt Date: 20200106
  Transmission Date: 20200409
  Serious: Yes (Death)
  Sender: FDA-Public Use
  Company Number: US-PFIZER INC-2020000794

PATIENT

DRUGS (1)
  1. CARBOPLATIN. [Suspect]
     Active Substance: CARBOPLATIN
     Dosage: 2000 MG/M2, CYCLIC (INFUSED OVER 24 HOURS BY CONTINUOUS INFUSION OVER FOUR DAYS)

REACTIONS (1)
  - Candida sepsis [Fatal]
